FAERS Safety Report 7272056-2 (Version None)
Quarter: 2011Q1

REPORT INFORMATION
  Report Type: 
  Country: None (occurrence: None)
  Receive Date: 20110131
  Receipt Date: 20110131
  Transmission Date: 20110831
  Serious: Yes (Other)
  Sender: FDA-Public Use
  Company Number: None

PATIENT
  Age: 36 Year
  Sex: Female
  Weight: 69.4003 kg

DRUGS (1)
  1. METRONIDAZOLE [Suspect]
     Indication: VAGINITIS BACTERIAL
     Dosage: 5 GRAMS ONCE DAILY VAG
     Route: 067
     Dates: start: 20110124, end: 20110125

REACTIONS (1)
  - DRUG HYPERSENSITIVITY [None]
